FAERS Safety Report 6227415-3 (Version None)
Quarter: 2009Q2

REPORT INFORMATION
  Report Type: 
  Country: None (occurrence: None)
  Receive Date: 20090610
  Receipt Date: 20090610
  Transmission Date: 20091009
  Serious: Yes (Life-Threatening)
  Sender: FDA-Public Use
  Company Number: None

PATIENT
  Age: 47 Year
  Sex: Male
  Weight: 113.3993 kg

DRUGS (1)
  1. LEVEMIR [Suspect]
     Indication: BLOOD GLUCOSE INCREASED
     Dosage: 40UNITS ONCE PER DAY SQ
     Route: 058
     Dates: start: 20090428, end: 20090609

REACTIONS (2)
  - DRUG EFFECT DECREASED [None]
  - PRODUCT QUALITY ISSUE [None]
